FAERS Safety Report 18834526 (Version 1)
Quarter: 2021Q1

REPORT INFORMATION
  Report Type: Spontaneous
  Country: FR (occurrence: FR)
  Receive Date: 20210203
  Receipt Date: 20210203
  Transmission Date: 20210419
  Serious: Yes (Life-Threatening, Other)
  Sender: FDA-Public Use
  Company Number: FR-AUROBINDO-AUR-APL-2021-004657

PATIENT
  Age: 82 Year
  Sex: Female

DRUGS (4)
  1. ZOLPIDEM [Suspect]
     Active Substance: ZOLPIDEM TARTRATE
     Indication: SLEEP DISORDER
     Dosage: NON PR?CIS?E
     Route: 048
     Dates: start: 20201231, end: 20210114
  2. ZOPICLONE [Interacting]
     Active Substance: ZOPICLONE
     Indication: SLEEP DISORDER
     Dosage: NON PR?CIS?E
     Route: 048
     Dates: start: 20201231, end: 20210114
  3. IZALGI [Interacting]
     Active Substance: ACETAMINOPHEN\OPIUM
     Indication: ANALGESIC INTERVENTION SUPPORTIVE THERAPY
     Dosage: NON PR?CIS?E
     Route: 048
     Dates: start: 20201231, end: 20210114
  4. ORAMORPH [Interacting]
     Active Substance: MORPHINE SULFATE
     Indication: ANALGESIC INTERVENTION SUPPORTIVE THERAPY
     Dosage: 9 GTT DROPS, ONCE A DAY
     Route: 048
     Dates: start: 20201231, end: 20210114

REACTIONS (5)
  - Overdose [Recovered/Resolved]
  - Miosis [Recovered/Resolved]
  - Respiratory distress [Recovered/Resolved]
  - Coma [Recovered/Resolved]
  - Hypercapnia [Recovered/Resolved]

NARRATIVE: CASE EVENT DATE: 20210114
